FAERS Safety Report 14239692 (Version 1)
Quarter: 2017Q4

REPORT INFORMATION
  Report Type: Spontaneous
  Country: US (occurrence: None)
  Receive Date: 20171127
  Receipt Date: 20171127
  Transmission Date: 20180321
  Serious: Yes (Other)
  Sender: FDA-Public Use
  Company Number: None

PATIENT
  Age: 31 Year
  Sex: Female
  Weight: 56.7 kg

DRUGS (1)
  1. COPPER-CONTAINING INTRAUTERINE DEVICE (IUD) [Suspect]
     Active Substance: COPPER
     Dates: start: 20140430, end: 20170915

REACTIONS (6)
  - Abdominal discomfort [None]
  - Embedded device [None]
  - Device dislocation [None]
  - Dyspareunia [None]
  - Vulvovaginal discomfort [None]
  - Irritable bowel syndrome [None]

NARRATIVE: CASE EVENT DATE: 20170823
